FAERS Safety Report 9681145 (Version 2)
Quarter: 2013Q4

REPORT INFORMATION
  Report Type: Spontaneous
  Country: AU (occurrence: AU)
  Receive Date: 20131111
  Receipt Date: 20131114
  Transmission Date: 20140711
  Serious: Yes (Hospitalization)
  Sender: FDA-Public Use
  Company Number: AU-JNJFOC-20131101345

PATIENT
  Age: 66 Year
  Sex: Male
  Weight: 110 kg

DRUGS (8)
  1. ZYTIGA [Suspect]
     Indication: PROSTATE CANCER METASTATIC
     Dosage: 250 MG X 4 TABLETS
     Route: 048
     Dates: start: 20120404, end: 20130903
  2. ZYTIGA [Suspect]
     Indication: PROSTATE CANCER METASTATIC
     Dosage: 250 MG X 4 TABLETS
     Route: 048
     Dates: start: 2013, end: 20131101
  3. PREDNISOLONE [Concomitant]
     Indication: PROSTATE CANCER METASTATIC
     Route: 048
     Dates: start: 20120404, end: 20130214
  4. PREDNISOLONE [Concomitant]
     Indication: PROSTATE CANCER METASTATIC
     Route: 048
     Dates: start: 20130215, end: 20130903
  5. PREDNISOLONE [Concomitant]
     Indication: PROSTATE CANCER METASTATIC
     Route: 048
     Dates: start: 2013, end: 20131101
  6. PREDNISOLONE [Concomitant]
     Indication: PROMOTION OF WOUND HEALING
     Route: 048
     Dates: start: 2013, end: 20131101
  7. PREDNISOLONE [Concomitant]
     Indication: PROMOTION OF WOUND HEALING
     Route: 048
     Dates: start: 20130215, end: 20130903
  8. PREDNISOLONE [Concomitant]
     Indication: PROMOTION OF WOUND HEALING
     Route: 048
     Dates: start: 20120404, end: 20130214

REACTIONS (1)
  - Spinal cord operation [Recovering/Resolving]
